FAERS Safety Report 5836606-2 (Version None)
Quarter: 2008Q3

REPORT INFORMATION
  Report Type: 
  Country: None (occurrence: None)
  Receive Date: 20080807
  Receipt Date: 20080801
  Transmission Date: 20090109
  Serious: Yes (Disabling, Other)
  Sender: FDA-Public Use
  Company Number: CO-BAYER-200816711LA

PATIENT
  Age: 30 Year
  Sex: Female
  Weight: 56 kg

DRUGS (2)
  1. MIRENA [Suspect]
     Indication: CONTRACEPTION
     Route: 015
     Dates: start: 20000101, end: 20060101
  2. MIRENA [Suspect]
     Route: 015
     Dates: start: 20070901, end: 20080701

REACTIONS (9)
  - ALOPECIA [None]
  - BACK PAIN [None]
  - CONVULSION [None]
  - HUMAN PAPILLOMA VIRUS TEST POSITIVE [None]
  - INFLAMMATION [None]
  - PAIN IN EXTREMITY [None]
  - THROMBOPHLEBITIS [None]
  - URINARY TRACT INFECTION [None]
  - WEIGHT INCREASED [None]
